FAERS Safety Report 18088133 (Version 3)
Quarter: 2020Q3

REPORT INFORMATION
  Report Type: Spontaneous
  Country: TH (occurrence: TH)
  Receive Date: 20200729
  Receipt Date: 20200816
  Transmission Date: 20201103
  Serious: Yes (Other)
  Sender: FDA-Public Use
  Company Number: PHHY2018TH022807

PATIENT
  Age: 66 Year
  Sex: Male

DRUGS (23)
  1. ENTRESTO [Suspect]
     Active Substance: SACUBITRIL\VALSARTAN
     Dosage: 100 MG, BID, 1.5 TAB (1 TABLET AND HALF)
     Route: 048
     Dates: start: 20180119
  2. NEBIVOLOL. [Concomitant]
     Active Substance: NEBIVOLOL
     Dosage: 0.5 DF, QD
     Route: 048
  3. METFORMIN [Concomitant]
     Active Substance: METFORMIN HYDROCHLORIDE
     Indication: PRODUCT USED FOR UNKNOWN INDICATION
     Dosage: 1 DF, QD
     Route: 048
  4. SENNA [Concomitant]
     Active Substance: SENNA LEAF\SENNOSIDES\SENNOSIDES A AND B
     Indication: PRODUCT USED FOR UNKNOWN INDICATION
     Dosage: 2 DF, 1 HS PM
     Route: 048
  5. ASPIRIN. [Concomitant]
     Active Substance: ASPIRIN
     Indication: PRODUCT USED FOR UNKNOWN INDICATION
     Dosage: 1 DF, QD
     Route: 048
  6. FUROSEMIDE. [Concomitant]
     Active Substance: FUROSEMIDE
     Indication: PRODUCT USED FOR UNKNOWN INDICATION
     Dosage: 1 DF, BID, IN MORNING AND IN NOON
     Route: 048
  7. FUROSEMIDE. [Concomitant]
     Active Substance: FUROSEMIDE
     Dosage: UNK DF, BID, (1 TAB IN MORNING AND HALF IN THE NOON)
     Route: 048
  8. ENTRESTO [Suspect]
     Active Substance: SACUBITRIL\VALSARTAN
     Dosage: 100 MG, BID
     Route: 048
     Dates: start: 20180114
  9. NEBIVOLOL. [Concomitant]
     Active Substance: NEBIVOLOL
     Indication: PRODUCT USED FOR UNKNOWN INDICATION
     Dosage: 0.25 DF, QD
     Route: 065
     Dates: start: 20180107
  10. NEBIVOLOL. [Concomitant]
     Active Substance: NEBIVOLOL
     Dosage: 0.25 DF, QD
     Route: 065
     Dates: start: 20180114
  11. ALDACTONE [Concomitant]
     Active Substance: SPIRONOLACTONE
     Indication: PRODUCT USED FOR UNKNOWN INDICATION
     Dosage: 1 DF, QD
     Route: 065
     Dates: start: 20180109
  12. SIMVASTATIN. [Concomitant]
     Active Substance: SIMVASTATIN
     Indication: PRODUCT USED FOR UNKNOWN INDICATION
     Dosage: 1 DF, QD, IN EVENING
     Route: 048
  13. SPIRONOLACTONE. [Concomitant]
     Active Substance: SPIRONOLACTONE
     Indication: PRODUCT USED FOR UNKNOWN INDICATION
     Dosage: 1 DF, QD
     Route: 048
  14. LEVOTHYROXINE. [Concomitant]
     Active Substance: LEVOTHYROXINE
     Indication: PRODUCT USED FOR UNKNOWN INDICATION
     Dosage: 1.5 DF, 1 AC
     Route: 048
  15. CARVEDILOL. [Concomitant]
     Active Substance: CARVEDILOL
     Indication: PRODUCT USED FOR UNKNOWN INDICATION
     Dosage: 0.5 DF, BID
     Route: 048
  16. TRIMETAZIDINE [Concomitant]
     Active Substance: TRIMETAZIDINE
     Indication: PRODUCT USED FOR UNKNOWN INDICATION
     Dosage: 1 DF, QD
     Route: 048
  17. ENTRESTO [Suspect]
     Active Substance: SACUBITRIL\VALSARTAN
     Dosage: 0.5 DF, BID, (HALF TABLET OF 200 MG)
     Route: 048
  18. ENTRESTO [Suspect]
     Active Substance: SACUBITRIL\VALSARTAN
     Indication: CARDIAC FAILURE CHRONIC
     Dosage: 0.5 DF, BID, (HALF TABLET OF 100 MG)
     Route: 048
     Dates: start: 20180112
  19. ALDACTONE [Concomitant]
     Active Substance: SPIRONOLACTONE
     Dosage: 1 DF, QD
     Route: 065
  20. PNEUMOCOCCAL VACCINE POLYVALENT NOS [Concomitant]
     Active Substance: PNEUMOCOCCAL VACCINE POLYVALENT
     Indication: PRODUCT USED FOR UNKNOWN INDICATION
     Dosage: .5 ML
     Route: 030
  21. ENTRESTO [Suspect]
     Active Substance: SACUBITRIL\VALSARTAN
     Dosage: 200 MG, BID
     Route: 048
     Dates: start: 20180122
  22. ENTRESTO [Suspect]
     Active Substance: SACUBITRIL\VALSARTAN
     Dosage: 0.25 DF, BID,(0.25 DF OF 200 MG)
     Route: 048
  23. EDOXABAN [Concomitant]
     Active Substance: EDOXABAN TOSYLATE
     Indication: PRODUCT USED FOR UNKNOWN INDICATION
     Dosage: 1 DF, QD, WITH MEAL IN MORNING
     Route: 048

REACTIONS (21)
  - Mitral valve thickening [Unknown]
  - Mitral valve incompetence [Unknown]
  - Tri-iodothyronine decreased [Unknown]
  - Left ventricular dilatation [Unknown]
  - Right atrial enlargement [Unknown]
  - Blood potassium decreased [Unknown]
  - Cardiomegaly [Unknown]
  - Mitral valve calcification [Unknown]
  - Spinal osteoarthritis [Unknown]
  - Left ventricular dysfunction [Unknown]
  - Wrong technique in product usage process [Unknown]
  - Ejection fraction decreased [Unknown]
  - Aortic dilatation [Unknown]
  - Parkinsonism [Unknown]
  - Atrial fibrillation [Unknown]
  - Interstitial lung disease [Unknown]
  - Blood thyroid stimulating hormone increased [Unknown]
  - Left atrial dilatation [Unknown]
  - Brain natriuretic peptide increased [Unknown]
  - Glomerular filtration rate decreased [Unknown]
  - Ejection fraction [Unknown]

NARRATIVE: CASE EVENT DATE: 20180112
